FAERS Safety Report 6398233-0 (Version None)
Quarter: 2009Q4

REPORT INFORMATION
  Report Type: 
  Country: None (occurrence: None)
  Receive Date: 20091013
  Receipt Date: 20091008
  Transmission Date: 20100525
  Serious: Yes (Life-Threatening, Other)
  Sender: FDA-Public Use
  Company Number: PHHY2009BR43695

PATIENT
  Age: 33 Year
  Sex: Female

DRUGS (1)
  1. FORASEQ [Suspect]
     Indication: BRONCHITIS
     Dosage: 1 INHALATION WITH EACH ACTIVE PRINCIPLE, THRICE A DAY

REACTIONS (16)
  - BRONCHITIS [None]
  - CHEST PAIN [None]
  - CONDITION AGGRAVATED [None]
  - COUGH [None]
  - DYSPNOEA [None]
  - FATIGUE [None]
  - FEELING ABNORMAL [None]
  - HYPOTHYROIDISM [None]
  - INSOMNIA [None]
  - MALAISE [None]
  - OROPHARYNGEAL PAIN [None]
  - PRURITUS [None]
  - RHINITIS ALLERGIC [None]
  - SWELLING FACE [None]
  - THROAT IRRITATION [None]
  - WHEEZING [None]
